FAERS Safety Report 17558274 (Version 1)
Quarter: 2020Q1

REPORT INFORMATION
  Report Type: Spontaneous
  Country: DE (occurrence: DE)
  Receive Date: 20200318
  Receipt Date: 20200318
  Transmission Date: 20200409
  Serious: Yes (Hospitalization)
  Sender: FDA-Public Use
  Company Number: DE-BAUSCH-BL-2020-007530

PATIENT
  Age: 50 Year
  Sex: Female

DRUGS (1)
  1. VENLAFAXIN [Suspect]
     Active Substance: VENLAFAXINE HYDROCHLORIDE
     Indication: PRODUCT USED FOR UNKNOWN INDICATION
     Dosage: 1-0-0-0
     Route: 065

REACTIONS (9)
  - Restlessness [Unknown]
  - Incontinence [Unknown]
  - Psychomotor hyperactivity [Unknown]
  - General physical health deterioration [Unknown]
  - Sedation [Unknown]
  - Fatigue [Unknown]
  - Seizure [Unknown]
  - Disorientation [Unknown]
  - Psychomotor retardation [Unknown]
